FAERS Safety Report 4644483-0 (Version None)
Quarter: 2005Q2

REPORT INFORMATION
  Report Type: 
  Country: None (occurrence: None)
  Receive Date: 20050425
  Receipt Date: 20050425
  Transmission Date: 20051028
  Serious: Yes (Life-Threatening, Hospitalization, Other)
  Sender: FDA-Public Use
  Company Number: None

PATIENT
  Age: 51 Year
  Sex: Male

DRUGS (1)
  1. LOPERAMIDE [Suspect]
     Indication: ANAPHYLACTIC REACTION
     Dosage: 2MG X2 DOSES PO
     Route: 048
     Dates: start: 20050211, end: 20050211

REACTIONS (7)
  - ANGIONEUROTIC OEDEMA [None]
  - BURNING SENSATION [None]
  - DIZZINESS [None]
  - HYPOTENSION [None]
  - RASH GENERALISED [None]
  - RASH PRURITIC [None]
  - VOMITING [None]
